FAERS Safety Report 21602323 (Version 1)
Quarter: 2022Q4

REPORT INFORMATION
  Report Type: Spontaneous
  Country: MX (occurrence: MX)
  Receive Date: 20221116
  Receipt Date: 20221116
  Transmission Date: 20230113
  Serious: No
  Sender: FDA-Public Use
  Company Number: MX-LUPIN PHARMACEUTICALS INC.-2022-13549

PATIENT
  Age: 55 Year
  Sex: Female

DRUGS (2)
  1. BIMATOPROST [Suspect]
     Active Substance: BIMATOPROST
     Indication: Glaucoma
     Dosage: 2 DROP, QD AT NIGHT (1 DROP IN EACH EYE)
     Route: 047
     Dates: start: 20221103
  2. BIMATOPROST [Suspect]
     Active Substance: BIMATOPROST
     Indication: Dry eye

REACTIONS (5)
  - Poor quality product administered [Unknown]
  - Product delivery mechanism issue [Unknown]
  - Product packaging issue [Unknown]
  - Extra dose administered [Unknown]
  - No adverse event [Unknown]
